FAERS Safety Report 11067148 (Version 2)
Quarter: 2015Q2

REPORT INFORMATION
  Report Type: Spontaneous
  Country: US (occurrence: US)
  Receive Date: 20150425
  Receipt Date: 20150525
  Transmission Date: 20150821
  Serious: Yes (Other)
  Sender: FDA-Public Use
  Company Number: US-JNJFOC-20131208399

PATIENT

DRUGS (1)
  1. REMICADE [Suspect]
     Active Substance: INFLIXIMAB
     Indication: PRODUCT USED FOR UNKNOWN INDICATION
     Route: 042

REACTIONS (6)
  - Infusion related reaction [Unknown]
  - Seizure [Unknown]
  - Cardio-respiratory distress [Unknown]
  - Rash [Unknown]
  - Chest pain [Unknown]
  - Anaphylactic reaction [Unknown]
